FAERS Safety Report 4648842-1 (Version None)
Quarter: 2005Q2

REPORT INFORMATION
  Report Type: 
  Country: None (occurrence: None)
  Receive Date: 20050427
  Receipt Date: 20050414
  Transmission Date: 20051028
  Serious: Yes (Other)
  Sender: FDA-Public Use
  Company Number: 2005-04-1256

PATIENT
  Age: 8 Year
  Sex: Female

DRUGS (1)
  1. CLARITIN [Suspect]
     Indication: RHINORRHOEA
     Dosage: 1 TAB QD ORAL
     Route: 048
     Dates: start: 20040401, end: 20050411

REACTIONS (1)
  - TIC [None]
